FAERS Safety Report 11619634 (Version 3)
Quarter: 2015Q4

REPORT INFORMATION
  Report Type: Spontaneous
  Country: US (occurrence: US)
  Receive Date: 20151012
  Receipt Date: 20151203
  Transmission Date: 20160304
  Serious: Yes (Hospitalization)
  Sender: FDA-Public Use
  Company Number: US-SA-2015SA159409

PATIENT
  Age: 44 Year
  Sex: Female
  Weight: 149 kg

DRUGS (2)
  1. NAPROXEN. [Concomitant]
     Active Substance: NAPROXEN
     Indication: OSTEOARTHRITIS
  2. AUBAGIO [Suspect]
     Active Substance: TERIFLUNOMIDE
     Indication: MULTIPLE SCLEROSIS
     Route: 048
     Dates: start: 20150721, end: 20151021

REACTIONS (5)
  - Upper respiratory tract infection [Recovered/Resolved]
  - Dyspnoea [Recovered/Resolved]
  - Dysphonia [Recovered/Resolved]
  - Bronchitis [Recovered/Resolved]
  - Sinusitis [Recovered/Resolved]

NARRATIVE: CASE EVENT DATE: 20150825
